FAERS Safety Report 6182821-0 (Version None)
Quarter: 2009Q2

REPORT INFORMATION
  Report Type: 
  Country: None (occurrence: None)
  Receive Date: 20090505
  Receipt Date: 20090420
  Transmission Date: 20091009
  Serious: Yes (Death)
  Sender: FDA-Public Use
  Company Number: 2008002817

PATIENT
  Age: 77 Year
  Sex: Male

DRUGS (9)
  1. ERLOTINIB (ERLOTINIB) (TABLET) (ERLOTINIB) [Suspect]
     Indication: LUNG ADENOCARCINOMA
     Dosage: (150 MG,QD),ORAL
     Route: 048
     Dates: start: 20081016, end: 20081022
  2. MAGNESIUM OXIDE (MAGNESIUM OXIDE) [Concomitant]
  3. NOVAMIN (PROCHLORPERAZINE) [Concomitant]
  4. MUCOSTA (REBAMIPIDINE) [Concomitant]
  5. FERROMIA (FERROUS CITRATE) [Concomitant]
  6. RABEPRAZOLE SODIUM [Concomitant]
  7. PREDNISOLONE [Concomitant]
  8. GLYCEROL 2.6% [Concomitant]
  9. DUROTEP [Concomitant]

REACTIONS (2)
  - BLOOD LACTATE DEHYDROGENASE INCREASED [None]
  - INTERSTITIAL LUNG DISEASE [None]
